FAERS Safety Report 9696363 (Version 1)
Quarter: 2013Q4

REPORT INFORMATION
  Report Type: Report from Study
  Country: CA (occurrence: CA)
  Receive Date: 20131119
  Receipt Date: 20131119
  Transmission Date: 20140711
  Serious: Yes (Hospitalization)
  Sender: FDA-Public Use
  Company Number: CA-BRISTOL-MYERS SQUIBB COMPANY-19797612

PATIENT
  Age: 66 Year
  Sex: Male
  Weight: 72 kg

DRUGS (10)
  1. BMS906024 [Suspect]
     Indication: NON-SMALL CELL LUNG CANCER
     Dosage: THERAPY DATES:22OCT13 AND 29OCT13?TOTAL DOSE:6MG
     Route: 042
     Dates: start: 20131022
  2. CARBOPLATIN [Suspect]
     Indication: NON-SMALL CELL LUNG CANCER
     Dosage: 1 DF: 6MG/ML/MIN?THERAPY DATES:01OCT13 AND 22OCT13?TOTAL DOSE:741MG
     Route: 042
     Dates: start: 20131001
  3. PACLITAXEL [Suspect]
     Indication: NON-SMALL CELL LUNG CANCER
     Dosage: TOTAL DOSE:388MG?THERAPY DATES:01OCT13 AND 22OCT13
     Route: 042
     Dates: start: 20131001
  4. DEXAMETHASONE [Suspect]
     Indication: NON-SMALL CELL LUNG CANCER
     Dosage: THERAPY DATES:01OCT13-01OCT13?22OCT13-22OCT13
     Route: 048
     Dates: start: 20131001, end: 20131022
  5. DIPHENHYDRAMINE HCL [Suspect]
     Indication: NON-SMALL CELL LUNG CANCER
     Dosage: THERAPY DATES:01OCT13-01OCT13?22OCT13-22OCT13
     Route: 048
     Dates: start: 20131001, end: 20131022
  6. RANITIDINE [Suspect]
     Indication: NON-SMALL CELL LUNG CANCER
     Dosage: THERAPY DATES:01OCT13-01OCT13?22OCT13-22OCT13
     Route: 048
     Dates: start: 20131001, end: 20131022
  7. METRONIDAZOLE [Concomitant]
  8. ADVIL [Concomitant]
     Dates: start: 20130810
  9. ONDANSETRON [Concomitant]
     Indication: PROPHYLAXIS
     Dosage: THERAPY DATES:1OCT13-1OCT13?22OCT13-22OCT13
     Route: 048
     Dates: start: 20131001, end: 20131022
  10. LORAZEPAM [Concomitant]
     Indication: PROPHYLAXIS
     Dosage: THERAPY DATES:01OCT13-01OCT13?22OCT13-22OCT13 6MG
     Route: 058
     Dates: start: 20131001, end: 20131022

REACTIONS (1)
  - Diarrhoea [Recovering/Resolving]
